FAERS Safety Report 7268890-5 (Version None)
Quarter: 2011Q1

REPORT INFORMATION
  Report Type: 
  Country: None (occurrence: None)
  Receive Date: 20110201
  Receipt Date: 20110125
  Transmission Date: 20110831
  Serious: Yes (Death)
  Sender: FDA-Public Use
  Company Number: CA-GILEAD-E2B_00001064

PATIENT
  Sex: Female

DRUGS (1)
  1. AMBRISENTAN [Suspect]
     Indication: SCLERODERMA
     Dosage: 5MG PER DAY
     Route: 048
     Dates: start: 20080521

REACTIONS (1)
  - DEATH [None]
